FAERS Safety Report 10387314 (Version 1)
Quarter: 2014Q1

REPORT INFORMATION
  Report Type: Spontaneous
  Country: US (occurrence: None)
  Receive Date: 20140306
  Receipt Date: 20140306
  Transmission Date: 20141002
  Serious: Yes (Other)
  Sender: FDA-Public Use
  Company Number: 163-21880-13051030

PATIENT
  Age: 65 Year
  Sex: Female

DRUGS (2)
  1. REVLIMID (LENALIDOMIDE) (CAPSULES) [Suspect]
     Indication: B-CELL LYMPHOMA
     Route: 048
  2. RITUXAN (RITUXIMAB) [Suspect]
     Indication: B-CELL LYMPHOMA

REACTIONS (2)
  - Tumour flare [None]
  - Plantar fasciitis [None]
